FAERS Safety Report 5138357-9 (Version None)
Quarter: 2006Q4

REPORT INFORMATION
  Report Type: 
  Country: None (occurrence: None)
  Receive Date: 20061030
  Receipt Date: 20061020
  Transmission Date: 20070319
  Serious: Yes (Other)
  Sender: FDA-Public Use
  Company Number: TR-AMGEN-UK197818

PATIENT
  Age: 42 Year
  Sex: Female

DRUGS (2)
  1. NEUPOGEN [Suspect]
     Indication: NEUTROPENIA
     Route: 065
  2. CALCITRIOL [Concomitant]

REACTIONS (4)
  - EXTRAMEDULLARY HAEMOPOIESIS [None]
  - LYMPHADENOPATHY [None]
  - NECK PAIN [None]
  - SKIN LESION [None]
